FAERS Safety Report 21399957 (Version 1)
Quarter: 2022Q4

REPORT INFORMATION
  Report Type: Spontaneous
  Country: US (occurrence: US)
  Receive Date: 20221002
  Receipt Date: 20221002
  Transmission Date: 20230112
  Serious: No
  Sender: FDA-Public Use
  Company Number: US-009507513-2210USA000006

PATIENT

DRUGS (4)
  1. PROQUAD [Suspect]
     Active Substance: MEASLES VIRUS STRAIN ENDERS^ ATTENUATED EDMONSTON LIVE ANTIGEN\MUMPS VIRUS STRAIN B LEVEL JERYL LYNN
     Indication: Prophylaxis
  2. VARIVAX [Suspect]
     Active Substance: VARICELLA-ZOSTER VIRUS STRAIN OKA/MERCK LIVE ANTIGEN
     Indication: Prophylaxis
  3. STERILE DILUENT (WATER) [Suspect]
     Active Substance: WATER
     Dosage: USE AS DIRECTED WITH VACCINE
  4. STERILE DILUENT (WATER) [Suspect]
     Active Substance: WATER
     Dosage: USE AS DIRECTED WITH VACCINE

REACTIONS (1)
  - Inappropriate schedule of product administration [Unknown]

NARRATIVE: CASE EVENT DATE: 20220929
